FAERS Safety Report 8909515 (Version 1)
Quarter: 2012Q4

REPORT INFORMATION
  Report Type: Report from Study
  Country: RO (occurrence: RO)
  Receive Date: 20121115
  Receipt Date: 20121115
  Transmission Date: 20130627
  Serious: Yes (Hospitalization, Other)
  Sender: FDA-Public Use
  Company Number: RO-ROCHE-1151630

PATIENT
  Sex: Male
  Weight: 130 kg

DRUGS (1)
  1. RITUXIMAB [Suspect]
     Indication: RHEUMATOID ARTHRITIS
     Dosage: last dose prior to SAE on 07/Dec/2011
     Route: 042
     Dates: start: 20111121

REACTIONS (3)
  - Gangrene [Recovered/Resolved]
  - Leg amputation [Recovered/Resolved]
  - Leg amputation [Recovered/Resolved]
